FAERS Safety Report 11737427 (Version 2)
Quarter: 2016Q2

REPORT INFORMATION
  Report Type: Spontaneous
  Country: US (occurrence: US)
  Receive Date: 20151113
  Receipt Date: 20160503
  Transmission Date: 20160815
  Serious: No
  Sender: FDA-Public Use
  Company Number: US-GLAXOSMITHKLINE-US2015161774

PATIENT
  Age: 23 Year
  Sex: Male

DRUGS (5)
  1. KEPPRA [Suspect]
     Active Substance: LEVETIRACETAM
     Indication: SEIZURE
     Dosage: UNK, U
     Route: 065
  2. KEPPRA [Concomitant]
     Active Substance: LEVETIRACETAM
  3. LAMICTAL XR [Suspect]
     Active Substance: LAMOTRIGINE
     Indication: SEIZURE
     Dosage: UNK, U
     Route: 048
     Dates: start: 201507
  4. LAMICTAL XR [Suspect]
     Active Substance: LAMOTRIGINE
     Dosage: 450 MG, UNK
  5. LAMICTAL XR [Suspect]
     Active Substance: LAMOTRIGINE
     Dosage: 400 MG, UNK

REACTIONS (3)
  - Nocturia [Not Recovered/Not Resolved]
  - Drug ineffective [Recovered/Resolved]
  - Insomnia [Not Recovered/Not Resolved]

NARRATIVE: CASE EVENT DATE: 20150914
